FAERS Safety Report 7586039-6 (Version None)
Quarter: 2011Q3

REPORT INFORMATION
  Report Type: 
  Country: None (occurrence: None)
  Receive Date: 20110701
  Receipt Date: 20110623
  Transmission Date: 20111222
  Serious: Yes (Other)
  Sender: FDA-Public Use
  Company Number: US-ABBOTT-11P-163-0834428-00

PATIENT
  Age: 43 Year
  Sex: Female

DRUGS (4)
  1. ZOLOFT [Concomitant]
     Indication: PRODUCT USED FOR UNKNOWN INDICATION
     Dosage: DAILY
     Route: 048
  2. HUMIRA [Suspect]
     Indication: BLOOD TESTOSTERONE DECREASED
     Dates: start: 20110512
  3. AMBIEN [Concomitant]
     Indication: PRODUCT USED FOR UNKNOWN INDICATION
     Dosage: DAILY
     Route: 048
  4. PROGESTERINE [Concomitant]
     Indication: PRODUCT USED FOR UNKNOWN INDICATION
     Dosage: DAILY
     Route: 048

REACTIONS (3)
  - CHILLS [None]
  - HYPERHIDROSIS [None]
  - UTERINE LEIOMYOMA [None]
